FAERS Safety Report 9714131 (Version 1)
Quarter: 2013Q4

REPORT INFORMATION
  Report Type: Spontaneous
  Country: US (occurrence: US)
  Receive Date: 20131126
  Receipt Date: 20131126
  Transmission Date: 20140711
  Serious: No
  Sender: FDA-Public Use
  Company Number: US-GILEAD-2008-0018951

PATIENT
  Sex: Female
  Weight: 48.99 kg

DRUGS (10)
  1. LETAIRIS [Suspect]
     Indication: PULMONARY HYPERTENSION
     Route: 048
  2. REVATIO [Concomitant]
  3. REMODULIN [Concomitant]
  4. COUMADIN [Concomitant]
  5. SPIRONOLACT [Concomitant]
  6. LASIX [Concomitant]
  7. PREDNISONE [Concomitant]
  8. FENTANYL [Concomitant]
  9. LEXAPRO [Concomitant]
  10. DARVON [Concomitant]

REACTIONS (4)
  - Nausea [Not Recovered/Not Resolved]
  - Fatigue [Not Recovered/Not Resolved]
  - Constipation [Not Recovered/Not Resolved]
  - Oedema [Not Recovered/Not Resolved]
